FAERS Safety Report 6115280-4 (Version None)
Quarter: 2009Q1

REPORT INFORMATION
  Report Type: 
  Country: None (occurrence: None)
  Receive Date: 20090311
  Receipt Date: 20081222
  Transmission Date: 20090719
  Serious: Yes (Other)
  Sender: FDA-Public Use
  Company Number: US200812005434

PATIENT
  Age: 86 Year
  Sex: Male

DRUGS (1)
  1. GEMZAR [Suspect]
     Indication: BLADDER CANCER
     Dates: start: 20080501, end: 20080101

REACTIONS (2)
  - DRUG INEFFECTIVE [None]
  - MALIGNANT NEOPLASM PROGRESSION [None]
